FAERS Safety Report 18234602 (Version 1)
Quarter: 2020Q3

REPORT INFORMATION
  Report Type: Spontaneous
  Country: DE (occurrence: DE)
  Receive Date: 20200904
  Receipt Date: 20200904
  Transmission Date: 20201103
  Serious: Yes (Other)
  Sender: FDA-Public Use
  Company Number: NVSC2020DE238219

PATIENT
  Age: 27 Year
  Sex: Female

DRUGS (6)
  1. LAMOTRIGINE. [Suspect]
     Active Substance: LAMOTRIGINE
     Indication: EPILEPSY
     Dosage: 450 MG, UNKNOWN
     Route: 048
     Dates: start: 201809
  2. FYCOMPA [Suspect]
     Active Substance: PERAMPANEL
     Dosage: 8 MG, QD
     Route: 048
     Dates: start: 2020
  3. LAMOTRIGINE. [Suspect]
     Active Substance: LAMOTRIGINE
     Dosage: DOSE UP?TITRATED
     Route: 048
     Dates: start: 2020
  4. LACOSAMIDE. [Suspect]
     Active Substance: LACOSAMIDE
     Indication: EPILEPSY
     Dosage: 300 MG, UNKNOWN
     Route: 048
     Dates: start: 2018
  5. FYCOMPA [Suspect]
     Active Substance: PERAMPANEL
     Indication: EPILEPSY
     Dosage: 6 MG, QD
     Route: 048
     Dates: start: 201902
  6. LACOSAMIDE. [Suspect]
     Active Substance: LACOSAMIDE
     Dosage: DOSE UP?TITRATED
     Route: 048
     Dates: start: 2020

REACTIONS (3)
  - Abortion spontaneous [Recovered/Resolved]
  - Exposure during pregnancy [Recovered/Resolved]
  - Seizure [Unknown]

NARRATIVE: CASE EVENT DATE: 2020
